FAERS Safety Report 9052881 (Version 2)
Quarter: 2013Q2

REPORT INFORMATION
  Report Type: Report from Study
  Country: US (occurrence: US)
  Receive Date: 20130207
  Receipt Date: 20130627
  Transmission Date: 20140414
  Serious: Yes (Hospitalization, Other)
  Sender: FDA-Public Use
  Company Number: US-US-EMD SERONO, INC.-7186439

PATIENT
  Age: 37 Year
  Sex: Female
  Weight: 42 kg

DRUGS (6)
  1. REBIF [Suspect]
     Indication: MULTIPLE SCLEROSIS
     Route: 058
     Dates: start: 20121207, end: 201301
  2. REBIF [Suspect]
     Route: 058
     Dates: start: 20130227, end: 201305
  3. CYMBALTA [Concomitant]
     Indication: DEPRESSION
  4. MARIJUANA [Concomitant]
     Indication: PRODUCT USED FOR UNKNOWN INDICATION
  5. ZOLOFT [Concomitant]
     Indication: DEPRESSION
  6. WELLBUTRIN [Concomitant]
     Indication: DEPRESSION

REACTIONS (5)
  - Suicidal ideation [Unknown]
  - Depression [Unknown]
  - Weight decreased [Unknown]
  - Gait disturbance [Not Recovered/Not Resolved]
  - Injection site pain [Not Recovered/Not Resolved]
